FAERS Safety Report 10694174 (Version 4)
Quarter: 2015Q2

REPORT INFORMATION
  Report Type: Report from Study
  Country: US (occurrence: US)
  Receive Date: 20150106
  Receipt Date: 20150505
  Transmission Date: 20150821
  Serious: Yes (Death, Hospitalization, Other)
  Sender: FDA-Public Use
  Company Number: US-GILEAD-2015-0130351

PATIENT
  Age: 58 Year
  Sex: Male

DRUGS (1)
  1. AMBRISENTAN [Suspect]
     Active Substance: AMBRISENTAN
     Indication: PRODUCT USED FOR UNKNOWN INDICATION
     Dosage: 10 MG, QD
     Route: 065
     Dates: start: 20101019

REACTIONS (4)
  - Respiratory failure [Not Recovered/Not Resolved]
  - Herpes zoster [Not Recovered/Not Resolved]
  - Death [Fatal]
  - Measles [Not Recovered/Not Resolved]
